FAERS Safety Report 8580301-6 (Version None)
Quarter: 2012Q3

REPORT INFORMATION
  Report Type: 
  Country: None (occurrence: None)
  Receive Date: 20120808
  Receipt Date: 20120730
  Transmission Date: 20120928
  Serious: Yes (Hospitalization, Other)
  Sender: FDA-Public Use
  Company Number: IT-PFIZER INC-2012186386

PATIENT
  Age: 76 Year
  Sex: Female

DRUGS (7)
  1. KONAKION [Concomitant]
     Dosage: 10MG/ML, UNK
  2. NEXIUM [Concomitant]
     Dosage: UNK
  3. LASIX [Concomitant]
     Dosage: 25 MG, UNK
  4. RIFAXIMIN [Concomitant]
     Dosage: UNK
  5. SEREPRILE [Suspect]
     Indication: SENILE PSYCHOSIS
     Dosage: 2 DF, DAILY
     Route: 048
     Dates: start: 20120628, end: 20120723
  6. ALDACTONE [Concomitant]
     Indication: PRODUCT USED FOR UNKNOWN INDICATION
     Dosage: 100 MG, UNK
  7. ALPRAZOLAM [Suspect]
     Dosage: 0.25 MG, DAILY
     Route: 048
     Dates: start: 20120718, end: 20120723

REACTIONS (9)
  - SOPOR [None]
  - HEART RATE INCREASED [None]
  - HEPATIC CIRRHOSIS [None]
  - DRUG ABUSE [None]
  - ENCEPHALOPATHY [None]
  - COMA [None]
  - SENILE DEMENTIA [None]
  - DRUG SCREEN POSITIVE [None]
  - HEPATITIS C ANTIBODY POSITIVE [None]
